FAERS Safety Report 23251564 (Version 1)
Quarter: 2023Q4

REPORT INFORMATION
  Report Type: Spontaneous
  Country: CZ (occurrence: CZ)
  Receive Date: 20231201
  Receipt Date: 20231201
  Transmission Date: 20240110
  Serious: Yes (Other)
  Sender: FDA-Public Use
  Company Number: None

PATIENT
  Sex: Female

DRUGS (1)
  1. EUTHYROX [Suspect]
     Active Substance: LEVOTHYROXINE SODIUM
     Indication: Thyroid disorder
     Dates: end: 20201212

REACTIONS (7)
  - Eyelid oedema [Recovering/Resolving]
  - Swelling face [Recovering/Resolving]
  - Allergic reaction to excipient [Recovering/Resolving]
  - Polyuria [Recovering/Resolving]
  - Dry skin [Recovering/Resolving]
  - Oedema peripheral [Recovering/Resolving]
  - Chromaturia [Recovering/Resolving]
